FAERS Safety Report 6945986-6 (Version None)
Quarter: 2010Q3

REPORT INFORMATION
  Report Type: 
  Country: None (occurrence: None)
  Receive Date: 20100827
  Receipt Date: 20100819
  Transmission Date: 20110219
  Serious: Yes (Death, Other)
  Sender: FDA-Public Use
  Company Number: US-AMGEN-QUU432498

PATIENT
  Sex: Female

DRUGS (2)
  1. EPOGEN [Suspect]
     Indication: ANAEMIA OF MALIGNANT DISEASE
  2. UNSPECIFIED ANTINEOPLASTIC AGENT [Concomitant]

REACTIONS (6)
  - BREAST CANCER METASTATIC [None]
  - DEATH [None]
  - METASTASES TO BONE [None]
  - METASTASES TO KIDNEY [None]
  - METASTASES TO LIVER [None]
  - QUALITY OF LIFE DECREASED [None]
